FAERS Safety Report 5251997-1 (Version None)
Quarter: 2007Q1

REPORT INFORMATION
  Report Type: 
  Country: None (occurrence: None)
  Receive Date: 20070223
  Receipt Date: 20070222
  Transmission Date: 20070707
  Serious: Yes (Other)
  Sender: FDA-Public Use
  Company Number: 010976

PATIENT
  Sex: Female

DRUGS (6)
  1. MEDROXYPROGESTERONE [Suspect]
     Dosage: ORAL
     Route: 048
     Dates: start: 19961201, end: 20010301
  2. ESTRADIOL [Suspect]
     Dosage: ORAL
     Route: 048
     Dates: start: 19961201, end: 20010301
  3. ESTRACE [Suspect]
     Dosage: ORAL
     Route: 048
     Dates: start: 19961201, end: 20010301
  4. ESTRATAB [Suspect]
     Dosage: ORAL
     Route: 048
     Dates: start: 19961201, end: 20010301
  5. PROMETRIUM [Suspect]
     Dosage: ORAL
     Route: 048
     Dates: start: 19961201, end: 20010301
  6. PROVERA [Suspect]
     Dosage: ORAL
     Route: 048
     Dates: start: 19961201, end: 20010301

REACTIONS (1)
  - BREAST CANCER FEMALE [None]
